FAERS Safety Report 6974248-6 (Version None)
Quarter: 2010Q3

REPORT INFORMATION
  Report Type: 
  Country: None (occurrence: None)
  Receive Date: 20100909
  Receipt Date: 20100826
  Transmission Date: 20110219
  Serious: Yes (Other)
  Sender: FDA-Public Use
  Company Number: GB-GENENTECH-289146

PATIENT
  Age: 13 Year
  Sex: Male

DRUGS (15)
  1. RITUXIMAB [Suspect]
     Indication: CHEMOTHERAPY
     Dosage: 375 MG/M2, UNK
     Route: 065
  2. CYCLOPHOSPHAMIDE [Suspect]
     Indication: CHEMOTHERAPY
     Route: 065
  3. CYTARABINE [Suspect]
     Indication: CHEMOTHERAPY
     Dosage: 1000 MG/M2, UNK
     Route: 065
  4. DEXRAZOXANE [Suspect]
     Indication: CHEMOTHERAPY
     Route: 065
  5. DOXORUBICIN HCL [Suspect]
     Indication: CHEMOTHERAPY
     Dosage: UNK MG/M2, UNK
     Route: 065
  6. PREDNISOLONE [Suspect]
     Indication: HEART TRANSPLANT
     Dosage: 2000 MG/M2, UNK
     Route: 065
  7. TACROLIMUS [Suspect]
     Indication: HEART TRANSPLANT
     Route: 065
  8. TACROLIMUS [Suspect]
     Dosage: 4-5 A?G/L, UNK
     Route: 065
  9. THIOGUANINE [Suspect]
     Indication: CHEMOTHERAPY
     Dosage: 750 MG/M2, UNK
     Route: 065
  10. THIOGUANINE [Suspect]
     Route: 065
  11. VINCRISTINE [Suspect]
     Indication: CHEMOTHERAPY
     Dosage: 6 MG/M2, UNK
     Route: 065
  12. METHOTREXATE [Suspect]
     Indication: PRODUCT USED FOR UNKNOWN INDICATION
     Route: 037
  13. CAELYX [Suspect]
     Indication: PRODUCT USED FOR UNKNOWN INDICATION
     Dosage: 200 MG/M2, UNK
     Route: 042
  14. ETOPOSIDE [Suspect]
     Indication: PRODUCT USED FOR UNKNOWN INDICATION
     Route: 065
  15. AZATHIOPRINE [Suspect]
     Indication: HEART TRANSPLANT
     Route: 065

REACTIONS (14)
  - ABDOMINAL PAIN [None]
  - BURKITT'S LYMPHOMA [None]
  - DEVICE RELATED INFECTION [None]
  - EPSTEIN-BARR VIRAEMIA [None]
  - LYMPHADENOPATHY [None]
  - LYMPHOPROLIFERATIVE DISORDER [None]
  - MASS [None]
  - MUSCLE CONTRACTIONS INVOLUNTARY [None]
  - PNEUMOCYSTIS JIROVECI PNEUMONIA [None]
  - PNEUMONITIS [None]
  - RENAL FAILURE [None]
  - SEPSIS [None]
  - STAPHYLOCOCCAL BACTERAEMIA [None]
  - TIC [None]
